FAERS Safety Report 7091795-X (Version None)
Quarter: 2010Q4

REPORT INFORMATION
  Report Type: 
  Country: None (occurrence: None)
  Receive Date: 20101101
  Receipt Date: 20101025
  Transmission Date: 20110411
  Serious: Yes (Death)
  Sender: FDA-Public Use
  Company Number: APP201000802

PATIENT
  Age: 62 Year
  Sex: Female

DRUGS (2)
  1. HEPARIN SODIUM INJECTION [Suspect]
     Indication: ANEURYSM RUPTURED
  2. ENOXAPARIN SODIUM [Concomitant]

REACTIONS (8)
  - BRAIN HERNIATION [None]
  - CEREBRAL ARTERY EMBOLISM [None]
  - CEREBRAL HAEMORRHAGE [None]
  - CEREBRAL INFARCTION [None]
  - EMBOLIC CEREBRAL INFARCTION [None]
  - GENERAL PHYSICAL HEALTH DETERIORATION [None]
  - HEPARIN-INDUCED THROMBOCYTOPENIA [None]
  - VASOSPASM [None]
